FAERS Safety Report 15646450 (Version 2)
Quarter: 2018Q4

REPORT INFORMATION
  Report Type: Spontaneous
  Country: CZ (occurrence: CZ)
  Receive Date: 20181122
  Receipt Date: 20181219
  Transmission Date: 20190205
  Serious: Yes (Hospitalization)
  Sender: FDA-Public Use
  Company Number: CZ-B.I. PHARMACEUTICALS,INC./RIDGEFIELD-2018-BI-055916

PATIENT
  Age: 81 Year
  Sex: Male
  Weight: 69 kg

DRUGS (2)
  1. PRADAXA [Suspect]
     Active Substance: DABIGATRAN ETEXILATE MESYLATE
     Indication: CEREBROVASCULAR ACCIDENT PROPHYLAXIS
     Dosage: TOTAL DRUG DURATION 1-2 WEEKS
     Route: 048
  2. PRADAXA [Suspect]
     Active Substance: DABIGATRAN ETEXILATE MESYLATE
     Indication: ATRIAL FIBRILLATION

REACTIONS (5)
  - Melaena [Recovered/Resolved]
  - Hypotension [Recovered/Resolved]
  - Vision blurred [Recovered/Resolved]
  - Vertigo [Unknown]
  - Gastrointestinal haemorrhage [Recovered/Resolved]
